FAERS Safety Report 10152471 (Version 1)
Quarter: 2014Q2

REPORT INFORMATION
  Report Type: Spontaneous
  Country: CA (occurrence: CA)
  Receive Date: 20140505
  Receipt Date: 20140505
  Transmission Date: 20141212
  Serious: Yes (Other)
  Sender: FDA-Public Use
  Company Number: CA-009507513-1404CAN014476

PATIENT
  Age: 48 Year
  Sex: Female

DRUGS (4)
  1. ISENTRESS [Suspect]
     Dosage: 1 DF, UNK
     Route: 065
  2. KIVEXA [Suspect]
     Dosage: 1 DF, UNK
     Route: 065
  3. CEPHALEXIN [Concomitant]
     Dosage: UNK
     Route: 065
  4. OLMETEC [Concomitant]
     Dosage: UNK
     Route: 065

REACTIONS (2)
  - Dermatitis allergic [Recovered/Resolved]
  - Rash [Recovered/Resolved]
